FAERS Safety Report 4713179-9 (Version None)
Quarter: 2005Q3

REPORT INFORMATION
  Report Type: 
  Country: None (occurrence: None)
  Receive Date: 20050712
  Receipt Date: 20050712
  Transmission Date: 20060218
  Serious: Yes (Death)
  Sender: FDA-Public Use
  Company Number: None

PATIENT
  Sex: Female
  Weight: 43.9989 kg

DRUGS (1)
  1. MEGACE [Suspect]
     Dosage: 500 PO QD
     Route: 048
     Dates: start: 20050210, end: 20050511

REACTIONS (1)
  - HOSPITALISATION [None]
